FAERS Safety Report 9877187 (Version 3)
Quarter: 2014Q1

REPORT INFORMATION
  Report Type: Report from Study
  Country: AU (occurrence: AU)
  Receive Date: 20140206
  Receipt Date: 20140211
  Transmission Date: 20141002
  Serious: Yes (Other)
  Sender: FDA-Public Use
  Company Number: PHHY2012AU039357

PATIENT
  Age: 77 Year
  Sex: Male

DRUGS (14)
  1. ACLASTA [Suspect]
     Indication: OSTEOPOROSIS
     Dosage: 5 MG, UNK
     Route: 042
     Dates: start: 20111201
  2. ACLASTA [Suspect]
     Indication: OSTEOPENIA
     Dosage: 5 MG, UNK
     Route: 042
     Dates: start: 20120504
  3. ACLASTA [Suspect]
     Indication: OSTEOPOROTIC FRACTURE
     Dosage: 5 MG, UNK
     Route: 042
     Dates: start: 20121126
  4. EXFORGE HCT [Suspect]
     Indication: BLOOD PRESSURE INCREASED
     Dosage: 1 DF, 1 TABLET AT MORNING
     Route: 048
     Dates: start: 20130523
  5. CRESTOR [Concomitant]
     Indication: HYPERLIPIDAEMIA
     Dosage: 20 MG, UNK
     Route: 048
  6. CRESTOR [Concomitant]
     Dosage: 1 DF, AT NOCTE
  7. KARVEZIDE [Concomitant]
     Indication: HYPERTENSION
     Dosage: 1 DF, QD
     Route: 048
  8. TAMBOCOR [Concomitant]
     Indication: ATRIAL FIBRILLATION
     Dosage: 1 DF, QD
     Route: 048
  9. TAMBOCOR [Concomitant]
     Dosage: 1 DF, BID
  10. ASPIRIN [Concomitant]
     Indication: ATRIAL FIBRILLATION
     Dosage: 100 MG, QD
  11. BRUFEN//IBUPROFEN [Concomitant]
     Dosage: 1 DF, TDS PC
  12. LASIX M [Concomitant]
     Dosage: 1 DF, AT MORNING
  13. FISH OIL [Concomitant]
     Dosage: 6000 MG, QD
  14. XARELTO [Concomitant]
     Dosage: 20 MG, UNK

REACTIONS (11)
  - Atrial flutter [Unknown]
  - Atrial fibrillation [Not Recovered/Not Resolved]
  - Inappropriate schedule of drug administration [Unknown]
  - Blood calcium increased [Unknown]
  - Influenza like illness [Recovered/Resolved]
  - Malaise [Recovered/Resolved]
  - Pyrexia [Recovered/Resolved]
  - Chills [Recovered/Resolved]
  - Headache [Recovered/Resolved]
  - Bone density decreased [Unknown]
  - Bone pain [Recovered/Resolved]
